FAERS Safety Report 6899302-9 (Version None)
Quarter: 2010Q3

REPORT INFORMATION
  Report Type: 
  Country: None (occurrence: None)
  Receive Date: 20100802
  Receipt Date: 20081004
  Transmission Date: 20110219
  Serious: No
  Sender: FDA-Public Use
  Company Number: US-PFIZER INC-2007009774

PATIENT
  Sex: Female
  Weight: 50.8 kg

DRUGS (9)
  1. LYRICA [Suspect]
     Indication: NECK PAIN
     Dates: start: 20060701
  2. NEURONTIN [Suspect]
     Indication: PAIN
     Dates: start: 20080929
  3. NEXIUM [Concomitant]
  4. PAXIL [Concomitant]
  5. ALDACTONE [Concomitant]
  6. XANAX [Concomitant]
  7. TRAZODONE [Concomitant]
  8. AMBIEN [Concomitant]
  9. ZANAFLEX [Concomitant]

REACTIONS (6)
  - ANXIETY [None]
  - DRUG INEFFECTIVE [None]
  - DYSPEPSIA [None]
  - EYE MOVEMENT DISORDER [None]
  - HEART RATE INCREASED [None]
  - VISION BLURRED [None]
